FAERS Safety Report 9528138 (Version 1)
Quarter: 2013Q1

REPORT INFORMATION
  Report Type: Spontaneous
  Country: US (occurrence: None)
  Receive Date: 20130314
  Receipt Date: 20130314
  Transmission Date: 20140127
  Serious: No
  Sender: FDA-Public Use
  Company Number: 1212USA001514

PATIENT
  Sex: Male

DRUGS (4)
  1. VICTRELIS [Suspect]
     Indication: HEPATITIS C
     Dosage: 4 DF, Q8H AS DIRECTED; START AT WEEK 5, ORAL
     Route: 048
  2. RIBAVIRIN [Suspect]
  3. PEGASYS [Suspect]
  4. PROCRIT (EPOETIN ALFA) [Concomitant]

REACTIONS (1)
  - Headache [None]
